FAERS Safety Report 17146186 (Version 1)
Quarter: 2019Q4

REPORT INFORMATION
  Report Type: Spontaneous
  Country: GB (occurrence: GB)
  Receive Date: 20191212
  Receipt Date: 20191212
  Transmission Date: 20200122
  Serious: Yes (Other)
  Sender: FDA-Public Use
  Company Number: GB-MYLANLABS-2019M1121250

PATIENT
  Age: 46 Year
  Sex: Female
  Weight: 94 kg

DRUGS (9)
  1. OMEPRAZOLE. [Concomitant]
     Active Substance: OMEPRAZOLE
     Dosage: 1 DOSAGE FORM, QD(IN THE MORNING)
     Dates: start: 20181030
  2. ISPAGHULA EXTRACT\PSYLLIUM [Concomitant]
     Active Substance: HERBALS\PLANTAGO OVATA SEED\PLANTAGO SEED
     Dosage: 1 DOSAGE FORM, QD
     Dates: start: 20181030
  3. CODEINE PHOSPHATE [Concomitant]
     Active Substance: CODEINE PHOSPHATE
     Dosage: 1 DOSAGE FORM, PRN (FOUR TIMES DAILY)
     Dates: start: 20181221, end: 20190128
  4. PARACETAMOL [Concomitant]
     Active Substance: ACETAMINOPHEN
     Dosage: 2 DOSAGE FORM
     Dates: start: 20181120
  5. GLYCEROL [Concomitant]
     Active Substance: GLYCERIN
     Dosage: 1 DOSAGE FORM, PRN
     Dates: start: 20181116
  6. COLECALCIFEROL [Concomitant]
     Active Substance: CHOLECALCIFEROL
     Dosage: 3 DOSAGE FORM, QW
     Dates: start: 20181219
  7. GABAPENTIN. [Suspect]
     Active Substance: GABAPENTIN
     Indication: PRODUCT USED FOR UNKNOWN INDICATION
     Dosage: 300 MILLIGRAM
     Dates: start: 20190128, end: 20190131
  8. LACTULOSE. [Concomitant]
     Active Substance: LACTULOSE
     Dosage: 30 MILLILITER, QD
     Dates: start: 20181030
  9. NEFOPAM [Concomitant]
     Active Substance: NEFOPAM
     Dosage: 2 DOSAGE FORM
     Dates: start: 20181116

REACTIONS (3)
  - Vomiting [Unknown]
  - Syncope [Recovered/Resolved]
  - Malaise [Recovered/Resolved]

NARRATIVE: CASE EVENT DATE: 20190219
